FAERS Safety Report 17482915 (Version 2)
Quarter: 2022Q2

REPORT INFORMATION
  Report Type: Spontaneous
  Country: US (occurrence: US)
  Receive Date: 20200302
  Receipt Date: 20220613
  Transmission Date: 20220721
  Serious: No
  Sender: FDA-Public Use
  Company Number: US-PFIZER INC-2020088927

PATIENT
  Age: 54 Year
  Sex: Female
  Weight: 45.81 kg

DRUGS (4)
  1. SKELAXIN [Suspect]
     Active Substance: METAXALONE
     Indication: Fibromyalgia
     Dosage: 800 MG, 1X/DAY, (800MG BY MOUTH AT NIGHT)
     Route: 048
     Dates: start: 2000
  2. SKELAXIN [Suspect]
     Active Substance: METAXALONE
     Dosage: 400 MG, 1X/DAY, (800MG BY MOUTH AT NIGHT, CUTS IN HALF AND TAKES HALF DOSES)
     Route: 048
     Dates: start: 202001
  3. METAXALONE [Suspect]
     Active Substance: METAXALONE
     Indication: Fibromyalgia
     Dosage: 800 MG, 1X/DAY, (AT NIGHT)
     Route: 048
     Dates: start: 20191219
  4. METAXALONE [Suspect]
     Active Substance: METAXALONE
     Dosage: 400 MG, 1X/DAY, (SHE HAS BEEN CUTTING THEM IN HALF AND TAKING WITH HALF OF A METAXALONE)
     Route: 048
     Dates: start: 202001

REACTIONS (3)
  - Drug ineffective for unapproved indication [Unknown]
  - Off label use [Unknown]
  - Intentional product misuse [Unknown]

NARRATIVE: CASE EVENT DATE: 20000101
